FAERS Safety Report 8709589 (Version 2)
Quarter: 2012Q4

REPORT INFORMATION
  Report Type: 
  Country: US (occurrence: US)
  Receive Date: 20120806
  Receipt Date: 20121101
  Transmission Date: 20130627
  Serious: Yes (Other)
  Sender: FDA-Public Use
  Company Number: US-GLAXOSMITHKLINE-A0980371A

PATIENT
  Age: 60 Year
  Sex: Female

DRUGS (1)
  1. TYKERB [Suspect]
     Indication: BREAST CANCER
     Dosage: 1250MGD per day
     Route: 048

REACTIONS (4)
  - Palmar-plantar erythrodysaesthesia syndrome [Not Recovered/Not Resolved]
  - Skin exfoliation [Not Recovered/Not Resolved]
  - Adverse drug reaction [Unknown]
  - Disease progression [Unknown]
